FAERS Safety Report 14370557 (Version 1)
Quarter: 2018Q1

REPORT INFORMATION
  Report Type: Spontaneous
  Country: US (occurrence: US)
  Receive Date: 20180110
  Receipt Date: 20180110
  Transmission Date: 20180509
  Serious: No
  Sender: FDA-Public Use
  Company Number: US-PFIZER INC-2018005252

PATIENT
  Age: 20 Year
  Sex: Female
  Weight: 51 kg

DRUGS (2)
  1. ADVIL [Suspect]
     Active Substance: IBUPROFEN
     Indication: VAGINAL HAEMORRHAGE
     Dosage: 200MG TABLETS
     Dates: start: 20171225, end: 20180103
  2. NEXPLANON [Concomitant]
     Active Substance: ETONOGESTREL
     Indication: CONTRACEPTION
     Dosage: IMPLANT IN HER LEFT ARM, TRICEP, SHE THINKS IT STAYS FOR 3 YEARS.
     Dates: start: 20171127

REACTIONS (2)
  - Intentional product misuse [Unknown]
  - Uterine spasm [Not Recovered/Not Resolved]

NARRATIVE: CASE EVENT DATE: 201712
